FAERS Safety Report 6991919-6 (Version None)
Quarter: 2010Q3

REPORT INFORMATION
  Report Type: 
  Country: None (occurrence: None)
  Receive Date: 20100917
  Receipt Date: 20100902
  Transmission Date: 20110219
  Serious: Yes (Other)
  Sender: FDA-Public Use
  Company Number: PHHY2010US51644

PATIENT
  Sex: Female
  Weight: 71 kg

DRUGS (4)
  1. EXJADE [Suspect]
     Indication: HAEMOCHROMATOSIS
     Dosage: 1250 MG, QD/ 20 MG PER KG
     Route: 048
     Dates: start: 20100728, end: 20100801
  2. BLOOD CELLS, PACKED HUMAN [Concomitant]
  3. IMMUNOSUPPRESSANTS [Concomitant]
  4. HIGH FERRITIN TRANSFUSION NEED [Concomitant]

REACTIONS (9)
  - ABDOMINAL DISCOMFORT [None]
  - ACTIVITIES OF DAILY LIVING IMPAIRED [None]
  - HEADACHE [None]
  - INFLUENZA LIKE ILLNESS [None]
  - LIVER TRANSPLANT [None]
  - NAUSEA [None]
  - OROPHARYNGEAL PAIN [None]
  - VERTIGO [None]
  - VOMITING [None]
